FAERS Safety Report 25107486 (Version 7)
Quarter: 2025Q3

REPORT INFORMATION
  Report Type: Report from Study
  Country: US (occurrence: US)
  Receive Date: 20250321
  Receipt Date: 20250708
  Transmission Date: 20251020
  Serious: No
  Sender: DAIICHI
  Company Number: US-DAIICHI SANKYO, INC.-DS-2025-130989-USAA

PATIENT
  Age: 48 Year
  Sex: Male

DRUGS (1)
  1. PEXIDARTINIB [Suspect]
     Active Substance: PEXIDARTINIB
     Indication: Giant cell tumour of tendon sheath
     Dosage: 125 MG, BID, 1 CAPSULE BY MOUTH TWICE DAILY
     Route: 048
     Dates: start: 20250213, end: 20250604

REACTIONS (4)
  - Activated partial thromboplastin time prolonged [Unknown]
  - Hair colour changes [Not Recovered/Not Resolved]
  - Liver function test abnormal [Recovering/Resolving]
  - Therapy cessation [Unknown]

NARRATIVE: CASE EVENT DATE: 20250604
